FAERS Safety Report 9920023 (Version 1)
Quarter: 2014Q1

REPORT INFORMATION
  Report Type: Spontaneous
  Country: KR (occurrence: KR)
  Receive Date: 20140224
  Receipt Date: 20140224
  Transmission Date: 20141002
  Serious: Yes (Other)
  Sender: FDA-Public Use
  Company Number: KR-WATSON-2014-02736

PATIENT
  Age: 74 Year
  Sex: Female

DRUGS (4)
  1. METHOTREXATE (UNKNOWN) [Suspect]
     Indication: ANGIOIMMUNOBLASTIC T-CELL LYMPHOMA STAGE III
     Dosage: UNK
     Route: 065
     Dates: start: 201106
  2. ETOPOSIDE (UNKNOWN) [Suspect]
     Indication: ANGIOIMMUNOBLASTIC T-CELL LYMPHOMA STAGE III
     Dosage: UNK
     Route: 065
     Dates: start: 201106
  3. PREDNISOLONE (UNKNOWN) [Suspect]
     Indication: ANGIOIMMUNOBLASTIC T-CELL LYMPHOMA STAGE III
     Dosage: UNK
     Route: 065
     Dates: start: 201106
  4. IFOSFAMIDE [Suspect]
     Indication: ANGIOIMMUNOBLASTIC T-CELL LYMPHOMA STAGE III
     Dosage: UNK
     Route: 065
     Dates: start: 201106

REACTIONS (3)
  - Febrile neutropenia [Unknown]
  - Pneumocystis jirovecii pneumonia [Unknown]
  - Escherichia bacteraemia [Unknown]
